FAERS Safety Report 9803342 (Version 2)
Quarter: 2014Q1

REPORT INFORMATION
  Report Type: Spontaneous
  Country: BR (occurrence: BR)
  Receive Date: 20140108
  Receipt Date: 20140317
  Transmission Date: 20141002
  Serious: Yes (Other)
  Sender: FDA-Public Use
  Company Number: PHHY2014BR001532

PATIENT
  Age: 74 Year
  Sex: Male
  Weight: 73 kg

DRUGS (10)
  1. STALEVO [Suspect]
     Indication: PARKINSON^S DISEASE
     Dosage: 3 DF, DAILY
     Route: 048
     Dates: start: 201401
  2. PROLOPA [Suspect]
     Indication: PARKINSON^S DISEASE
     Dosage: 4 DF, DAILY
     Route: 048
     Dates: start: 2004, end: 201401
  3. PROLOPA [Suspect]
     Dosage: 4 DF, DAILY
     Route: 048
     Dates: start: 201402
  4. OMEPRAZOLE [Concomitant]
     Indication: GASTRITIS
     Dosage: 1 DF, DAILY
     Route: 048
  5. ENALAPRIL [Concomitant]
     Indication: HYPERTENSION
     Dosage: 1 DF, DAILY
     Route: 048
  6. NIAR [Concomitant]
     Indication: PARKINSON^S DISEASE
     Dosage: 2 DF, DAILY
     Route: 048
  7. SIFROL [Concomitant]
     Indication: PARKINSON^S DISEASE
     Dosage: 2 DF, DAILY
     Route: 048
  8. AAS [Concomitant]
     Indication: ANTICOAGULANT THERAPY
     Dosage: 1 DF, DAILY
     Route: 048
  9. MOTILIUM [Concomitant]
     Indication: GASTRITIS
     Dosage: 2 DF, DAILY
     Route: 048
  10. DALMADORM [Concomitant]
     Indication: INSOMNIA
     Dosage: 1 DF, DAILY
     Route: 048

REACTIONS (4)
  - Wound [Recovering/Resolving]
  - Pharyngeal oedema [Recovering/Resolving]
  - Dry mouth [Recovering/Resolving]
  - Oedema peripheral [Recovering/Resolving]
